FAERS Safety Report 18304523 (Version 3)
Quarter: 2021Q1

REPORT INFORMATION
  Report Type: Spontaneous
  Country: US (occurrence: US)
  Receive Date: 20200923
  Receipt Date: 20210202
  Transmission Date: 20210419
  Serious: No
  Sender: FDA-Public Use
  Company Number: US-PFIZER INC-2019231490

PATIENT
  Age: 78 Year
  Sex: Male
  Weight: 79.37 kg

DRUGS (3)
  1. LYRICA [Suspect]
     Active Substance: PREGABALIN
     Dosage: 150 MG (1 CAPSULE FOUR TIMES A DAY)
     Route: 048
     Dates: start: 20191019
  2. LYRICA [Suspect]
     Active Substance: PREGABALIN
     Indication: NEUROPATHY PERIPHERAL
     Dosage: 100 MG 1 CAPSULE FOUR TIMES A DAY
     Route: 048
  3. GABAPENTIN. [Concomitant]
     Active Substance: GABAPENTIN
     Dosage: 400 MG, 6X/DAY
     Dates: start: 20190827

REACTIONS (1)
  - Memory impairment [Unknown]
